FAERS Safety Report 8296313-6 (Version None)
Quarter: 2012Q2

REPORT INFORMATION
  Report Type: 
  Country: None (occurrence: None)
  Receive Date: 20120418
  Receipt Date: 20120402
  Transmission Date: 20120825
  Serious: Yes (Disabling)
  Sender: FDA-Public Use
  Company Number: GB-TEVA-2010002583

PATIENT
  Sex: Female
  Weight: 43.1 kg

DRUGS (3)
  1. RITUXIMAB [Suspect]
     Route: 042
     Dates: start: 20100415, end: 20100416
  2. DULCOLAX [Concomitant]
  3. TREANDA [Suspect]
     Indication: CHRONIC LYMPHOCYTIC LEUKAEMIA
     Dosage: 180 MILLIGRAM;
     Route: 042
     Dates: start: 20100415

REACTIONS (2)
  - DIARRHOEA [None]
  - FAECAL INCONTINENCE [None]
